FAERS Safety Report 7118653-6 (Version None)
Quarter: 2010Q4

REPORT INFORMATION
  Report Type: 
  Country: None (occurrence: None)
  Receive Date: 20101027
  Receipt Date: 20100106
  Transmission Date: 20110411
  Serious: Yes (Other)
  Sender: FDA-Public Use
  Company Number: US-WYE-H12896810

PATIENT
  Age: 47 Year
  Sex: Female
  Weight: 86.26 kg

DRUGS (1)
  1. PREMARIN [Suspect]
     Indication: VULVOVAGINAL DRYNESS
     Dosage: ORAL
     Route: 048

REACTIONS (2)
  - APPLICATION SITE DISCOMFORT [None]
  - PRODUCT QUALITY ISSUE [None]
